FAERS Safety Report 24572205 (Version 14)
Quarter: 2025Q3

REPORT INFORMATION
  Report Type: Report from Study
  Country: JP (occurrence: JP)
  Receive Date: 20241101
  Receipt Date: 20250806
  Transmission Date: 20251021
  Serious: Yes (Hospitalization, Other)
  Sender: PFIZER
  Company Number: JP-PFIZER INC-202400290328

PATIENT
  Age: 69 Year
  Sex: Male

DRUGS (9)
  1. ELRANATAMAB [Suspect]
     Active Substance: ELRANATAMAB
     Indication: Plasma cell myeloma refractory
     Dates: start: 20241015, end: 20241015
  2. ELRANATAMAB [Suspect]
     Active Substance: ELRANATAMAB
     Dosage: 76 MG, DAILY
  3. ELRANATAMAB [Suspect]
     Active Substance: ELRANATAMAB
     Dates: start: 20250304
  4. ELRANATAMAB [Suspect]
     Active Substance: ELRANATAMAB
     Dosage: 32 MG, WEEKLY
     Dates: start: 2025, end: 202506
  5. ELRANATAMAB [Suspect]
     Active Substance: ELRANATAMAB
     Dates: start: 202506
  6. SULFAMERAZINE\TRIMETHOPRIM [Concomitant]
     Active Substance: SULFAMERAZINE\TRIMETHOPRIM
     Indication: Antibiotic prophylaxis
  7. ZOVIRAX [Concomitant]
     Active Substance: ACYCLOVIR
     Indication: Antiviral prophylaxis
  8. VALGANCICLOVIR [Concomitant]
     Active Substance: VALGANCICLOVIR
     Indication: Cytomegalovirus chorioretinitis
  9. UNSPECIFIED INGREDIENT [Concomitant]
     Active Substance: UNSPECIFIED INGREDIENT
     Indication: Dyslipidaemia

REACTIONS (13)
  - Cytomegalovirus chorioretinitis [Not Recovered/Not Resolved]
  - Syncope [Recovered/Resolved]
  - Arrhythmia [Recovered/Resolved]
  - Bradycardia [Unknown]
  - Atrioventricular block [Unknown]
  - Dysaesthesia [Not Recovered/Not Resolved]
  - Neutropenia [Not Recovered/Not Resolved]
  - Epigastric discomfort [Unknown]
  - Presyncope [Recovered/Resolved]
  - Chest pain [Recovered/Resolved]
  - Hypogammaglobulinaemia [Unknown]
  - Acute kidney injury [Not Recovered/Not Resolved]
  - Dehydration [Unknown]

NARRATIVE: CASE EVENT DATE: 20241001
